FAERS Safety Report 15251071 (Version 3)
Quarter: 2018Q4

REPORT INFORMATION
  Report Type: Spontaneous
  Country: US (occurrence: US)
  Receive Date: 20180807
  Receipt Date: 20181016
  Transmission Date: 20190204
  Serious: Yes (Other)
  Sender: FDA-Public Use
  Company Number: US-EPIC PHARMA LLC-2018EPC00356

PATIENT
  Sex: Female
  Weight: 63.49 kg

DRUGS (9)
  1. AMLODIPINE [Suspect]
     Active Substance: AMLODIPINE BESYLATE
     Indication: HYPERTENSION
     Dosage: 5 MG, 1X/DAY
     Route: 048
  2. ESCITALOPRAM [Concomitant]
     Active Substance: ESCITALOPRAM OXALATE
  3. UNSPECIFIED VITAMINS [Concomitant]
     Active Substance: VITAMINS
  4. ATORVASTATIN [Concomitant]
     Active Substance: ATORVASTATIN
  5. AUBAGIO [Concomitant]
     Active Substance: TERIFLUNOMIDE
     Dosage: UNK
     Dates: start: 201803
  6. TRAZODONE [Concomitant]
     Active Substance: TRAZODONE HYDROCHLORIDE
  7. AMLODIPINE [Suspect]
     Active Substance: AMLODIPINE BESYLATE
     Dosage: 5 MG, 1X/DAY
     Route: 048
  8. ESTRADIOL. [Concomitant]
     Active Substance: ESTRADIOL
  9. LORATADINE. [Concomitant]
     Active Substance: LORATADINE

REACTIONS (6)
  - Lactose intolerance [Not Recovered/Not Resolved]
  - Unevaluable event [Unknown]
  - Hypotension [Recovered/Resolved]
  - Product dose omission [Unknown]
  - Coeliac disease [Not Recovered/Not Resolved]
  - Multiple sclerosis [Not Recovered/Not Resolved]

NARRATIVE: CASE EVENT DATE: 2018
